FAERS Safety Report 16479708 (Version 1)
Quarter: 2019Q2

REPORT INFORMATION
  Report Type: Report from Study
  Country: US (occurrence: US)
  Receive Date: 20190626
  Receipt Date: 20190626
  Transmission Date: 20190711
  Serious: Yes (Other)
  Sender: FDA-Public Use
  Company Number: US-TESARO-2019-TSO01489-US

PATIENT
  Sex: Female

DRUGS (2)
  1. ZEJULA [Suspect]
     Active Substance: NIRAPARIB
     Indication: UTERINE CANCER
     Dosage: 100 MG, 6PM W/FOOD
     Dates: start: 20190330
  2. ZEJULA [Suspect]
     Active Substance: NIRAPARIB
     Indication: ENDOMETRIAL CANCER

REACTIONS (15)
  - Diarrhoea [Unknown]
  - Taste disorder [Unknown]
  - Carbohydrate antigen 125 increased [Recovering/Resolving]
  - Constipation [Recovering/Resolving]
  - Decreased appetite [Not Recovered/Not Resolved]
  - Joint swelling [Unknown]
  - Weight decreased [Unknown]
  - Red blood cell count decreased [Recovered/Resolved]
  - Insomnia [Unknown]
  - Underdose [Unknown]
  - Thrombosis [Unknown]
  - Dry mouth [Not Recovered/Not Resolved]
  - Blood pressure increased [Recovered/Resolved]
  - Product use in unapproved indication [Unknown]
  - Glossodynia [Recovered/Resolved]
